FAERS Safety Report 6658833-7 (Version None)
Quarter: 2010Q1

REPORT INFORMATION
  Report Type: 
  Country: None (occurrence: None)
  Receive Date: 20100330
  Receipt Date: 20100310
  Transmission Date: 20100710
  Serious: No
  Sender: FDA-Public Use
  Company Number: US-BIOGENIDEC-2010BI008369

PATIENT
  Age: 34 Year
  Sex: Female

DRUGS (2)
  1. TYSABRI [Suspect]
     Indication: MULTIPLE SCLEROSIS
     Route: 042
     Dates: start: 20061110, end: 20070425
  2. TYSABRI [Suspect]
     Route: 042
     Dates: start: 20090424

REACTIONS (2)
  - NASOPHARYNGITIS [None]
  - SINUSITIS [None]
